FAERS Safety Report 18586667 (Version 1)
Quarter: 2020Q4

REPORT INFORMATION
  Report Type: Spontaneous
  Country: IT (occurrence: IT)
  Receive Date: 20201207
  Receipt Date: 20201207
  Transmission Date: 20210114
  Serious: Yes (Other)
  Sender: FDA-Public Use
  Company Number: IT-TEVA-2020-IT-1855165

PATIENT
  Age: 3 Year
  Sex: Female
  Weight: 14 kg

DRUGS (7)
  1. ZOFRAN [Concomitant]
     Active Substance: ONDANSETRON HYDROCHLORIDE
     Dosage: 15 MG
     Route: 042
     Dates: start: 20201022, end: 20201105
  2. ANTRA [Concomitant]
     Active Substance: OMEPRAZOLE
     Dosage: 20 MG
     Route: 042
     Dates: start: 20201104, end: 20201105
  3. VINCRISTINE [Suspect]
     Active Substance: VINCRISTINE
     Indication: PLEUROPULMONARY BLASTOMA
     Dosage: 1 MG
     Route: 042
     Dates: start: 20201022, end: 20201105
  4. UROMITEXAN [Concomitant]
     Active Substance: MESNA
     Dosage: 205 MG
     Route: 042
     Dates: start: 20201022, end: 20201023
  5. ENDOXAN BAXTER [Concomitant]
     Active Substance: CYCLOPHOSPHAMIDE
     Dosage: 408 MG
     Route: 042
     Dates: start: 20201022, end: 20201023
  6. LASIX [Concomitant]
     Active Substance: FUROSEMIDE
     Dosage: 5 MG,VIALS
     Dates: start: 20201022, end: 20201023
  7. URBASON [Concomitant]
     Active Substance: METHYLPREDNISOLONE
     Dosage: 1.5 MG
     Route: 042
     Dates: start: 20191104, end: 20191105

REACTIONS (3)
  - Conversion disorder [Recovering/Resolving]
  - Crying [Recovering/Resolving]
  - Neuropathy peripheral [Recovering/Resolving]

NARRATIVE: CASE EVENT DATE: 20201105
